FAERS Safety Report 11003219 (Version 1)
Quarter: 2015Q2

REPORT INFORMATION
  Report Type: Spontaneous
  Country: US (occurrence: None)
  Receive Date: 20150408
  Receipt Date: 20150408
  Transmission Date: 20150821
  Serious: No
  Sender: FDA-Public Use
  Company Number: None

PATIENT
  Age: 56 Year
  Sex: Female

DRUGS (12)
  1. AMPYRA [Concomitant]
     Active Substance: DALFAMPRIDINE
  2. HYDROCODONE BITARTRATE AND ACETAMINOPHEN [Concomitant]
     Active Substance: ACETAMINOPHEN\HYDROCODONE BITARTRATE
  3. BACLOFEN (LIORESAL) [Concomitant]
  4. FINGOLIMOD, GILENYA [Concomitant]
  5. NORTRIPTYLINE [Concomitant]
     Active Substance: NORTRIPTYLINE
  6. SILVER SULFADIAZINE (SULVADENE/THERMAZENE) [Concomitant]
  7. DARIFENACIN (ENABLEX) [Concomitant]
  8. VITAMIN D3 [Concomitant]
     Active Substance: CHOLECALCIFEROL
  9. AMPYRA [Suspect]
     Active Substance: DALFAMPRIDINE
     Indication: MULTIPLE SCLEROSIS
     Route: 048
     Dates: start: 201211
  10. SULINDAC (CLINORIL) [Concomitant]
  11. CHOLECALCIFEROL [Concomitant]
     Active Substance: CHOLECALCIFEROL
  12. MOBIC [Concomitant]
     Active Substance: MELOXICAM

REACTIONS (3)
  - Lymphocyte count abnormal [None]
  - Laboratory test abnormal [None]
  - White blood cell count abnormal [None]

NARRATIVE: CASE EVENT DATE: 20150318
